FAERS Safety Report 16320947 (Version 3)
Quarter: 2021Q2

REPORT INFORMATION
  Report Type: Spontaneous
  Country: US (occurrence: US)
  Receive Date: 20190516
  Receipt Date: 20210603
  Transmission Date: 20210716
  Serious: No
  Sender: FDA-Public Use
  Company Number: US-GILEAD-2019-0407707

PATIENT
  Age: 31 Year
  Sex: Male
  Weight: 86.17 kg

DRUGS (5)
  1. ODEFSEY [Concomitant]
     Active Substance: EMTRICITABINE\RILPIVIRINE HYDROCHLORIDE\TENOFOVIR ALAFENAMIDE FUMARATE
  2. VALACYCLOVIR [Concomitant]
     Active Substance: VALACYCLOVIR HYDROCHLORIDE
  3. COMPLERA [Suspect]
     Active Substance: EMTRICITABINE\RILPIVIRINE HYDROCHLORIDE\TENOFOVIR DISOPROXIL FUMARATE
     Indication: HIV INFECTION
     Dosage: UNK
     Route: 048
     Dates: start: 2008, end: 20160328
  4. ATRIPLA [Suspect]
     Active Substance: EFAVIRENZ\EMTRICITABINE\TENOFOVIR DISOPROXIL FUMARATE
     Indication: HIV INFECTION
     Dosage: UNK
     Route: 048
     Dates: start: 2008, end: 20140516
  5. IBUPROFEN. [Concomitant]
     Active Substance: IBUPROFEN

REACTIONS (14)
  - Bone density decreased [Unknown]
  - Gait disturbance [Not Recovered/Not Resolved]
  - Anhedonia [Not Recovered/Not Resolved]
  - Pain [Not Recovered/Not Resolved]
  - Anxiety [Not Recovered/Not Resolved]
  - Migraine [Unknown]
  - Creatinine urine increased [Not Recovered/Not Resolved]
  - Protein total increased [Not Recovered/Not Resolved]
  - Abdominal pain [Unknown]
  - Arthropathy [Unknown]
  - Emotional distress [Not Recovered/Not Resolved]
  - Economic problem [Not Recovered/Not Resolved]
  - Penile discharge [Unknown]
  - Urethritis [Unknown]

NARRATIVE: CASE EVENT DATE: 2014
